FAERS Safety Report 7543894-3 (Version None)
Quarter: 2011Q2

REPORT INFORMATION
  Report Type: 
  Country: None (occurrence: None)
  Receive Date: 20110613
  Receipt Date: 20110606
  Transmission Date: 20111010
  Serious: Yes (Other)
  Sender: FDA-Public Use
  Company Number: US-US-EMD SERONO, INC.-7063871

PATIENT
  Sex: Female

DRUGS (1)
  1. REBIF [Suspect]
     Indication: PRODUCT USED FOR UNKNOWN INDICATION
     Route: 058
     Dates: start: 20020904

REACTIONS (6)
  - VERTIGO [None]
  - MUSCLE SPASTICITY [None]
  - OPTIC NEURITIS [None]
  - TRIGEMINAL NEURALGIA [None]
  - INJECTION SITE WARMTH [None]
  - INJECTION SITE INDURATION [None]
